FAERS Safety Report 25994903 (Version 1)
Quarter: 2025Q4

REPORT INFORMATION
  Report Type: Spontaneous
  Country: EU (occurrence: EU)
  Receive Date: 20251104
  Receipt Date: 20251104
  Transmission Date: 20260118
  Serious: Yes (Life-Threatening, Hospitalization)
  Sender: SAMSUNG BIOEPIS
  Company Number: None

PATIENT
  Age: 17 Year
  Sex: Female
  Weight: 91.4 kg

DRUGS (1)
  1. INFLIXIMAB [Suspect]
     Active Substance: INFLIXIMAB
     Indication: Colitis ulcerative
     Dosage: MAXIMUM DOSE: 300 MG
     Route: 042
     Dates: start: 202107

REACTIONS (5)
  - Dyspnoea [Recovered/Resolved]
  - Stridor [Recovered/Resolved]
  - Respiration abnormal [Recovered/Resolved]
  - Headache [Recovered/Resolved]
  - Blood pressure abnormal [Recovered/Resolved]

NARRATIVE: CASE EVENT DATE: 20220415
